FAERS Safety Report 17600751 (Version 1)
Quarter: 2020Q1

REPORT INFORMATION
  Report Type: Spontaneous
  Country: GB (occurrence: GB)
  Receive Date: 20200330
  Receipt Date: 20200330
  Transmission Date: 20200409
  Serious: Yes (Hospitalization, Other)
  Sender: FDA-Public Use
  Company Number: GB-PFIZER INC-2020128884

PATIENT
  Age: 60 Year
  Sex: Male
  Weight: 95.25 kg

DRUGS (3)
  1. DILTIAZEM HYDROCHLORIDE. [Interacting]
     Active Substance: DILTIAZEM HYDROCHLORIDE
     Dosage: 360 MG, UNK
     Route: 048
     Dates: start: 20200109, end: 20200119
  2. DOXAZOSIN MESILATE [Suspect]
     Active Substance: DOXAZOSIN MESYLATE
     Dosage: 4 MG, UNK
     Route: 048
     Dates: start: 20200109
  3. AMITRIPTYLINE [Concomitant]
     Active Substance: AMITRIPTYLINE
     Dosage: UNK

REACTIONS (6)
  - Peripheral swelling [Unknown]
  - Drug interaction [Unknown]
  - Joint swelling [Unknown]
  - Blood pressure increased [Not Recovered/Not Resolved]
  - Hot flush [Not Recovered/Not Resolved]
  - Chest pain [Unknown]

NARRATIVE: CASE EVENT DATE: 20200116
